FAERS Safety Report 6940539-8 (Version None)
Quarter: 2010Q3

REPORT INFORMATION
  Report Type: 
  Country: None (occurrence: None)
  Receive Date: 20100825
  Receipt Date: 20100816
  Transmission Date: 20110219
  Serious: Yes (Hospitalization)
  Sender: FDA-Public Use
  Company Number: IL-ABBOTT-10P-082-0656605-00

PATIENT
  Sex: Male
  Weight: 80 kg

DRUGS (2)
  1. HUMIRA [Suspect]
     Indication: PROSTATIC SPECIFIC ANTIGEN
     Route: 058
     Dates: start: 20100627, end: 20100627
  2. TRAMADEX [Concomitant]
     Indication: ANALGESIC THERAPY

REACTIONS (2)
  - LICE INFESTATION [None]
  - LYMPHADENOPATHY [None]
